FAERS Safety Report 15149341 (Version 1)
Quarter: 2018Q3

REPORT INFORMATION
  Report Type: Spontaneous
  Country: IT (occurrence: IT)
  Receive Date: 20180716
  Receipt Date: 20180716
  Transmission Date: 20181010
  Serious: Yes (Hospitalization)
  Sender: FDA-Public Use
  Company Number: PHHY2018IT045351

PATIENT
  Age: 64 Year
  Sex: Female

DRUGS (1)
  1. EXJADE [Suspect]
     Active Substance: DEFERASIROX
     Indication: HYPERFERRITINAEMIA
     Dosage: UNK
     Route: 048

REACTIONS (4)
  - Polyuria [Recovering/Resolving]
  - Polydipsia [Recovering/Resolving]
  - Diabetes insipidus [Recovering/Resolving]
  - Urine analysis abnormal [Recovering/Resolving]

NARRATIVE: CASE EVENT DATE: 20180406
